FAERS Safety Report 20696692 (Version 3)
Quarter: 2024Q4

REPORT INFORMATION
  Report Type: Spontaneous
  Country: US (occurrence: US)
  Receive Date: 20220411
  Receipt Date: 20241206
  Transmission Date: 20250115
  Serious: Yes (Life-Threatening, Other)
  Sender: ROCHE
  Company Number: US-ROCHE-3065326

PATIENT
  Age: 66 Year
  Sex: Male
  Weight: 78.93 kg

DRUGS (9)
  1. RITUXAN [Suspect]
     Active Substance: RITUXIMAB
     Indication: Follicular lymphoma
     Dosage: START DATE: 29-MAR-2022
     Route: 065
  2. RITUXAN [Suspect]
     Active Substance: RITUXIMAB
     Dosage: LAST DOSE RECEIVED ON 04-AUG-2022
     Route: 065
     Dates: start: 2022
  3. OMEPRAZOLE [Concomitant]
     Active Substance: OMEPRAZOLE
     Indication: Hiatus hernia
     Dosage: 1-2 PER DAY AT NIGHT AND SOMETIMES IN THE MORNING
  4. OMEPRAZOLE [Concomitant]
     Active Substance: OMEPRAZOLE
     Indication: Gastrooesophageal reflux disease
  5. ZOLPIDEM [Concomitant]
     Active Substance: ZOLPIDEM TARTRATE
     Indication: Insomnia
     Dosage: 5-10MG EVERY NIGHT ;ONGOING: YES
  6. MELATONIN [Concomitant]
     Active Substance: MELATONIN
     Dosage: 10-20MG ;ONGOING: YES
  7. TYLENOL [Concomitant]
     Active Substance: ACETAMINOPHEN
     Dosage: YES? FREQUENCY TEXT:AS REQUIRED
  8. FLUTICASONE PROPIONATE [Concomitant]
     Active Substance: FLUTICASONE PROPIONATE
     Dosage: YES
  9. REVLIMID [Concomitant]
     Active Substance: LENALIDOMIDE

REACTIONS (6)
  - Pruritus [Recovered/Resolved]
  - Urticaria [Recovered/Resolved]
  - Hypersensitivity [Unknown]
  - Follicular lymphoma [Unknown]
  - Lymphadenopathy [Unknown]
  - Weight decreased [Unknown]

NARRATIVE: CASE EVENT DATE: 20220329
